FAERS Safety Report 13706098 (Version 1)
Quarter: 2017Q2

REPORT INFORMATION
  Report Type: Spontaneous
  Country: US (occurrence: US)
  Receive Date: 20170630
  Receipt Date: 20170630
  Transmission Date: 20170830
  Serious: No
  Sender: FDA-Public Use
  Company Number: US-EAGLE PHARMACEUTICALS, INC.-US-2017EAG000037

PATIENT
  Sex: Male

DRUGS (3)
  1. BENDEKA [Suspect]
     Active Substance: BENDAMUSTINE HYDROCHLORIDE
     Dosage: 270 MG IN 100 ML OF DILUTION WITH NORMAL SALINE
     Route: 042
  2. BENDEKA [Suspect]
     Active Substance: BENDAMUSTINE HYDROCHLORIDE
     Indication: B-CELL LYMPHOMA
     Dosage: 270 MG IN 50 ML OF DILUTION WITH NORMAL SALINE
     Route: 042
  3. BENDEKA [Suspect]
     Active Substance: BENDAMUSTINE HYDROCHLORIDE
     Dosage: 270 MG IN 140 ML OF DILUTION WITH NORMAL SALINE
     Route: 042

REACTIONS (1)
  - Infusion site irritation [Recovered/Resolved]
